FAERS Safety Report 5657306-8 (Version None)
Quarter: 2008Q1

REPORT INFORMATION
  Report Type: 
  Country: None (occurrence: None)
  Receive Date: 20080310
  Receipt Date: 20080229
  Transmission Date: 20080703
  Serious: Yes (Other)
  Sender: FDA-Public Use
  Company Number: US-PFIZER INC-2008019729

PATIENT
  Sex: Female
  Weight: 72.6 kg

DRUGS (7)
  1. BEXTRA [Suspect]
     Indication: LUNG DISORDER
  2. LEVOTHYROXINE SODIUM [Concomitant]
  3. GLIPIZIDE [Concomitant]
  4. ASPIRIN [Concomitant]
  5. VITAMIN CAP [Concomitant]
  6. PREMARIN [Concomitant]
  7. ZYRTEC [Concomitant]

REACTIONS (1)
  - HYPERSENSITIVITY [None]
